FAERS Safety Report 6719699-X (Version None)
Quarter: 2010Q2

REPORT INFORMATION
  Report Type: 
  Country: None (occurrence: None)
  Receive Date: 20100510
  Receipt Date: 20100510
  Transmission Date: 20101027
  Serious: Yes (Hospitalization)
  Sender: FDA-Public Use
  Company Number: None

PATIENT
  Age: 63 Year
  Sex: Male

DRUGS (1)
  1. ALLOPURINOL [Suspect]
     Indication: GOUT
     Dosage: 300 MG EVERY DAY PO
     Route: 048
     Dates: start: 20100408, end: 20100506

REACTIONS (5)
  - ERYTHEMA MULTIFORME [None]
  - GOUT [None]
  - JOINT EFFUSION [None]
  - ORAL DISORDER [None]
  - THERAPEUTIC RESPONSE DECREASED [None]
